FAERS Safety Report 8299098-2 (Version None)
Quarter: 2012Q2

REPORT INFORMATION
  Report Type: 
  Country: None (occurrence: None)
  Receive Date: 20120419
  Receipt Date: 20120328
  Transmission Date: 20120825
  Serious: No
  Sender: FDA-Public Use
  Company Number: US-BAYER-2012-030728

PATIENT
  Age: 34 Year
  Sex: Female

DRUGS (1)
  1. DROSPIRENONE AND ETHINYL ESTRADIOL [Suspect]
     Indication: CONTRACEPTION
     Dosage: UNK

REACTIONS (6)
  - FEELING ABNORMAL [None]
  - RASH [None]
  - DEPRESSION [None]
  - WEIGHT LOSS POOR [None]
  - ABDOMINAL DISTENSION [None]
  - UNEVALUABLE EVENT [None]
